FAERS Safety Report 13005260 (Version 2)
Quarter: 2016Q4

REPORT INFORMATION
  Report Type: Spontaneous
  Country: DE (occurrence: DE)
  Receive Date: 20161207
  Receipt Date: 20161228
  Transmission Date: 20170207
  Serious: Yes (Other)
  Sender: FDA-Public Use
  Company Number: PHHY2016DE166764

PATIENT
  Sex: Female
  Weight: 72 kg

DRUGS (4)
  1. COSENTYX [Suspect]
     Active Substance: SECUKINUMAB
     Indication: PSORIASIS
     Dosage: 300 MG, PER APPLICATION
     Route: 065
     Dates: start: 20160411
  2. COSENTYX [Suspect]
     Active Substance: SECUKINUMAB
     Dosage: 300 MG, PER APPLICATION
     Route: 065
     Dates: start: 20160427
  3. COSENTYX [Suspect]
     Active Substance: SECUKINUMAB
     Dosage: 300  MG, PER APPLICATION
     Route: 065
     Dates: start: 20160420
  4. COSENTYX [Suspect]
     Active Substance: SECUKINUMAB
     Dosage: 300 MG, PER APPLICATION
     Route: 065
     Dates: start: 20160504

REACTIONS (2)
  - Lymphopenia [Unknown]
  - Leukopenia [Unknown]
